FAERS Safety Report 9712617 (Version 2)
Quarter: 2014Q2

REPORT INFORMATION
  Report Type: Spontaneous
  Country: US (occurrence: US)
  Receive Date: 20131126
  Receipt Date: 20140510
  Transmission Date: 20141212
  Serious: No
  Sender: FDA-Public Use
  Company Number: US-BRISTOL-MYERS SQUIBB COMPANY-19205830

PATIENT
  Age: 60 Year
  Sex: Male
  Weight: 111.11 kg

DRUGS (2)
  1. BYDUREON [Suspect]
     Dosage: EXP:JUN2016
     Route: 058
  2. GLYBURIDE [Concomitant]

REACTIONS (6)
  - Injection site nodule [Unknown]
  - Injection site bruising [Recovered/Resolved]
  - Decreased appetite [Unknown]
  - Injection site extravasation [Unknown]
  - Drug dose omission [Unknown]
  - Weight increased [Unknown]
